FAERS Safety Report 15673006 (Version 5)
Quarter: 2019Q1

REPORT INFORMATION
  Report Type: Report from Study
  Country: US (occurrence: US)
  Receive Date: 20181129
  Receipt Date: 20190206
  Transmission Date: 20190417
  Serious: Yes (Hospitalization, Other)
  Sender: FDA-Public Use
  Company Number: US-TESARO-2018-TSO0884-US

PATIENT
  Age: 63 Year
  Sex: Female

DRUGS (2)
  1. BENADRYL [Concomitant]
     Active Substance: DIPHENHYDRAMINE HYDROCHLORIDE
     Indication: PRODUCT USED FOR UNKNOWN INDICATION
  2. ZEJULA [Suspect]
     Active Substance: NIRAPARIB
     Indication: OVARIAN CANCER
     Dosage: 200 MG IN THE EVENING (PM), QD
     Route: 048
     Dates: start: 20180901

REACTIONS (26)
  - Renal cyst [Unknown]
  - Arteriosclerosis [Unknown]
  - Abdominal pain [Not Recovered/Not Resolved]
  - Rash [Unknown]
  - Red blood cell count decreased [Unknown]
  - Nausea [Unknown]
  - Colorectostomy [Unknown]
  - Lymphocyte count increased [Unknown]
  - Anaemia [Unknown]
  - Fatigue [Unknown]
  - Neuropathy peripheral [Unknown]
  - Autonomic nervous system imbalance [Unknown]
  - Constipation [Not Recovered/Not Resolved]
  - Insomnia [Not Recovered/Not Resolved]
  - Platelet count decreased [Recovered/Resolved]
  - Urogenital atrophy [Unknown]
  - Pneumonia [Recovered/Resolved]
  - Neutropenia [Unknown]
  - Hypomagnesaemia [Unknown]
  - Headache [Unknown]
  - Urinary tract infection [Unknown]
  - Initial insomnia [Not Recovered/Not Resolved]
  - Carbohydrate antigen 125 increased [Recovering/Resolving]
  - Mean platelet volume decreased [Unknown]
  - Blood glucose increased [Unknown]
  - Decreased appetite [Unknown]

NARRATIVE: CASE EVENT DATE: 2018
